FAERS Safety Report 8369282-8 (Version None)
Quarter: 2012Q2

REPORT INFORMATION
  Report Type: 
  Country: None (occurrence: None)
  Receive Date: 20120518
  Receipt Date: 20120514
  Transmission Date: 20120825
  Serious: Yes (Other)
  Sender: FDA-Public Use
  Company Number: PHHY2012DE005595

PATIENT
  Sex: Male
  Weight: 106 kg

DRUGS (3)
  1. INTERFERON BETA-1B [Suspect]
     Indication: MULTIPLE SCLEROSIS
     Dosage: 250 MCG/ML AT 1 ML EVERY OTHER DAY
     Route: 058
     Dates: start: 20090428, end: 20111101
  2. LYRICA [Concomitant]
     Dosage: 225 MG, DAILY
     Route: 048
     Dates: start: 20080101
  3. TILIDIN [Concomitant]
     Dosage: 150 MG, DAILY
     Route: 048

REACTIONS (1)
  - TOOTH LOSS [None]
